FAERS Safety Report 18086731 (Version 2)
Quarter: 2020Q3

REPORT INFORMATION
  Report Type: Spontaneous
  Country: US (occurrence: US)
  Receive Date: 20200729
  Receipt Date: 20200814
  Transmission Date: 20201103
  Serious: Yes (Other)
  Sender: FDA-Public Use
  Company Number: US-PFIZER INC-2020284900

PATIENT
  Age: 66 Year
  Sex: Male
  Weight: 117.93 kg

DRUGS (5)
  1. CHANTIX [Suspect]
     Active Substance: VARENICLINE TARTRATE
     Indication: TOBACCO USER
     Dosage: 1 MG, 1X/DAY
     Route: 048
  2. GLUCOPHAGE [Suspect]
     Active Substance: METFORMIN HYDROCHLORIDE
     Indication: TYPE 2 DIABETES MELLITUS
     Dosage: 50 G, 2X/DAY
     Dates: start: 2014, end: 20200720
  3. NEURONTIN [Concomitant]
     Active Substance: GABAPENTIN
     Indication: NEUROPATHY PERIPHERAL
     Dosage: 100 MG, 1X/DAY, [100 MG AT HS (AT BED TIME) PRESENTLY TAKING]
     Dates: start: 2015
  4. CHANTIX [Suspect]
     Active Substance: VARENICLINE TARTRATE
     Indication: SMOKING CESSATION THERAPY
     Dosage: 0.5 MG X 10 DAYS, 1MG X6 WEEKS
     Route: 048
     Dates: start: 202003, end: 20200715
  5. ULTRAM [Concomitant]
     Active Substance: TRAMADOL HYDROCHLORIDE
     Dosage: 50 G, AS NEEDED, [NTERMITTENT 50 G ONCE DAILY PO QD PRN (PER ORAL, ONCE DAILY, AS NEEDED)]
     Route: 048
     Dates: start: 2017

REACTIONS (2)
  - Drug eruption [Unknown]
  - Erythema multiforme [Recovering/Resolving]

NARRATIVE: CASE EVENT DATE: 20200720
